FAERS Safety Report 10642746 (Version 4)
Quarter: 2015Q1

REPORT INFORMATION
  Report Type: Spontaneous
  Country: US (occurrence: US)
  Receive Date: 20141210
  Receipt Date: 20150227
  Transmission Date: 20150720
  Serious: Yes (Death, Hospitalization, Other)
  Sender: FDA-Public Use
  Company Number: US-MERCK-1412USA002063

PATIENT
  Age: 29 Year
  Sex: Female
  Weight: 120.64 kg

DRUGS (6)
  1. KEYTRUDA [Suspect]
     Active Substance: PEMBROLIZUMAB
     Dosage: 2 MG/KG=137 MG, UNK
     Route: 042
     Dates: start: 20140702
  2. KEYTRUDA [Suspect]
     Active Substance: PEMBROLIZUMAB
     Dosage: 2 MG/KG=137 MG, UNK
     Route: 042
     Dates: start: 20140611
  3. KEYTRUDA [Suspect]
     Active Substance: PEMBROLIZUMAB
     Dosage: 2 MG/KG=150 MG, UNK
     Route: 042
     Dates: start: 20140912
  4. KEYTRUDA [Suspect]
     Active Substance: PEMBROLIZUMAB
     Dosage: 2 MG/KG=150 MG, UNK
     Route: 042
     Dates: start: 20140812
  5. KEYTRUDA [Suspect]
     Active Substance: PEMBROLIZUMAB
     Dosage: 2 MG/KG=137 MG, UNK
     Route: 042
     Dates: start: 20140721
  6. KEYTRUDA [Suspect]
     Active Substance: PEMBROLIZUMAB
     Indication: MALIGNANT MELANOMA
     Dosage: 2 MG/KG=137 MG, UNK
     Route: 042
     Dates: start: 20140522

REACTIONS (22)
  - Abdominal pain [Unknown]
  - Generalised tonic-clonic seizure [Unknown]
  - Spinal osteoarthritis [Unknown]
  - Mental status changes [Unknown]
  - Drug hypersensitivity [Unknown]
  - Fatigue [Unknown]
  - Metastases to central nervous system [Fatal]
  - Oedema peripheral [Unknown]
  - Salivary gland mass [Unknown]
  - Neuropathy peripheral [Unknown]
  - Generalised tonic-clonic seizure [Unknown]
  - Candida infection [Unknown]
  - Lymphoedema [Unknown]
  - Pruritus [Unknown]
  - Rash [Unknown]
  - Metastatic malignant melanoma [Fatal]
  - Intervertebral disc disorder [Unknown]
  - Blood glucose increased [Unknown]
  - Pruritus generalised [Unknown]
  - Flushing [Unknown]
  - Adverse drug reaction [Unknown]
  - Hypothyroidism [Unknown]

NARRATIVE: CASE EVENT DATE: 201409
